FAERS Safety Report 6851561-4 (Version None)
Quarter: 2010Q3

REPORT INFORMATION
  Report Type: 
  Country: None (occurrence: None)
  Receive Date: 20100717
  Receipt Date: 20080116
  Transmission Date: 20110219
  Serious: No
  Sender: FDA-Public Use
  Company Number: US-PFIZER INC-2008006787

PATIENT
  Sex: Female
  Weight: 72.727 kg

DRUGS (2)
  1. CHANTIX [Suspect]
     Indication: SMOKING CESSATION THERAPY
     Dates: start: 20071001
  2. ZIAC [Concomitant]

REACTIONS (4)
  - DYSPEPSIA [None]
  - HYPERTENSION [None]
  - MEMORY IMPAIRMENT [None]
  - WEIGHT INCREASED [None]
